FAERS Safety Report 21286762 (Version 2)
Quarter: 2022Q4

REPORT INFORMATION
  Report Type: Spontaneous
  Country: US (occurrence: US)
  Receive Date: 20220902
  Receipt Date: 20221028
  Transmission Date: 20230112
  Serious: Yes (Hospitalization)
  Sender: FDA-Public Use
  Company Number: US-COLLEGIUM PHARMACEUTICAL, INC.-20220800163

PATIENT

DRUGS (4)
  1. BELBUCA [Interacting]
     Active Substance: BUPRENORPHINE HYDROCHLORIDE
     Indication: Pain
     Dosage: 150 MICROGRAM, QD
     Route: 002
     Dates: end: 2021
  2. BELBUCA [Interacting]
     Active Substance: BUPRENORPHINE HYDROCHLORIDE
     Dosage: UNK, BID
     Route: 002
     Dates: start: 2021, end: 202208
  3. ACETAMINOPHEN\OXYCODONE HYDROCHLORIDE\OXYCODONE TEREPHTHALATE [Interacting]
     Active Substance: ACETAMINOPHEN\OXYCODONE HYDROCHLORIDE\OXYCODONE TEREPHTHALATE
     Indication: Breakthrough pain
     Dosage: 10 MILLIGRAM, FIVES TIMES A DAY
     Route: 065
  4. ADDERALL [Concomitant]
     Active Substance: AMPHETAMINE ASPARTATE\AMPHETAMINE SULFATE\DEXTROAMPHETAMINE SACCHARATE\DEXTROAMPHETAMINE SULFATE
     Indication: Product used for unknown indication
     Dosage: 20 MILLIGRAM, BID
     Route: 065

REACTIONS (8)
  - Urticaria [Recovering/Resolving]
  - Blister [Recovering/Resolving]
  - Heart rate increased [Unknown]
  - Pain [Unknown]
  - Arthralgia [Unknown]
  - Drug interaction [Unknown]
  - Scar [Unknown]
  - Cardiac disorder [Unknown]

NARRATIVE: CASE EVENT DATE: 20210101
